FAERS Safety Report 5188481-X (Version None)
Quarter: 2006Q4

REPORT INFORMATION
  Report Type: 
  Country: None (occurrence: None)
  Receive Date: 20061221
  Receipt Date: 20061213
  Transmission Date: 20070319
  Serious: Yes (Hospitalization, Other)
  Sender: FDA-Public Use
  Company Number: DE-PURDUE-DEU_2006_0002770

PATIENT
  Age: 58 Year
  Sex: Female
  Weight: 95 kg

DRUGS (3)
  1. OXYCODON 10MG / NALOXON 5MG [Suspect]
     Indication: BACK PAIN
     Dosage: 70 MG, DAILY
     Route: 048
     Dates: start: 20060406
  2. OLMESARTAN [Concomitant]
  3. SYMBICORT [Concomitant]

REACTIONS (1)
  - BENIGN BREAST NEOPLASM [None]
